FAERS Safety Report 7125487-5 (Version None)
Quarter: 2010Q4

REPORT INFORMATION
  Report Type: 
  Country: None (occurrence: None)
  Receive Date: 20101129
  Receipt Date: 20101119
  Transmission Date: 20110411
  Serious: Yes (Hospitalization)
  Sender: FDA-Public Use
  Company Number: DE-ROCHE-738241

PATIENT
  Sex: Female
  Weight: 88 kg

DRUGS (3)
  1. BEVACIZUMAB [Suspect]
     Indication: BREAST CANCER
     Dosage: LAST DOSE PRIOR TO SAE ON 14 OCTOBER 2010. FORM: INFUSION, PERMANENTLY DISCONTINUED.
     Route: 042
     Dates: start: 20101014
  2. CAPECITABINE [Suspect]
     Indication: BREAST CANCER
     Dosage: LAST DOSE PRIOR TO SAE ON 27 OCTOBER 2010. PERMANENTLY DISCONTINUED.
     Route: 048
     Dates: start: 20101014
  3. VINORELBINE [Suspect]
     Indication: BREAST CANCER
     Dosage: LAST DOSE PRIOR TO SAE  ON 21 OCTOBER 2010.  FORM: INFUSION, PERMANENTLY DISCONTINUED.
     Route: 042
     Dates: start: 20101014

REACTIONS (4)
  - ASTHENIA [None]
  - PANCYTOPENIA [None]
  - PERIPHERAL SENSORY NEUROPATHY [None]
  - UPPER RESPIRATORY TRACT INFECTION [None]
